FAERS Safety Report 24265229 (Version 1)
Quarter: 2024Q3

REPORT INFORMATION
  Report Type: Spontaneous
  Country: IT (occurrence: IT)
  Receive Date: 20240829
  Receipt Date: 20240829
  Transmission Date: 20241016
  Serious: Yes (Other)
  Sender: TEVA
  Company Number: None

PATIENT
  Age: 10 Year
  Sex: Male
  Weight: 38 kg

DRUGS (2)
  1. VINCRISTINE [Suspect]
     Active Substance: VINCRISTINE
     Indication: Astrocytoma, low grade
     Dosage: VINCRISTINE 1.5 MG/M2 IV OVER 5 MIN OF WEEK 49, VINCRISTINE THERAPY STARTED ON 2/9/2023, VINCRIST...
     Route: 042
     Dates: start: 20230902, end: 20240808
  2. CARBOPLATIN [Suspect]
     Active Substance: CARBOPLATIN
     Indication: Astrocytoma, low grade
     Dosage: CARBOPLATIN 550 MG/M2 IN 1 HOUR IV, CARBOPLATIN INTAKE BY PROTOCOL STARTED ON 2/9/2023 , CARBOPLA...
     Route: 042
     Dates: start: 20230902, end: 20240808

REACTIONS (3)
  - Face oedema [Recovered/Resolved]
  - Urticaria [Recovered/Resolved]
  - Oxygen saturation decreased [Recovered/Resolved]

NARRATIVE: CASE EVENT DATE: 20240808
